FAERS Safety Report 5640576-X (Version None)
Quarter: 2008Q1

REPORT INFORMATION
  Report Type: 
  Country: None (occurrence: None)
  Receive Date: 20080227
  Receipt Date: 20080220
  Transmission Date: 20080703
  Serious: Yes (Other)
  Sender: FDA-Public Use
  Company Number: PHEH2008US02046

PATIENT
  Sex: Female

DRUGS (2)
  1. ARIMIDEX [Suspect]
  2. FEMARA [Suspect]

REACTIONS (1)
  - VAGINAL NEOPLASM [None]
